FAERS Safety Report 11828645 (Version 1)
Quarter: 2015Q4

REPORT INFORMATION
  Report Type: Spontaneous
  Country: US (occurrence: US)
  Receive Date: 20151211
  Receipt Date: 20151211
  Transmission Date: 20160305
  Serious: No
  Sender: FDA-Public Use
  Company Number: US-BAUSCH-BL-2015-009915

PATIENT
  Sex: Female

DRUGS (4)
  1. XENAZINE [Suspect]
     Active Substance: TETRABENAZINE
     Dosage: WEEK 2: 12.5MG ONE TABLET ORALLY TWICE A DAY
     Route: 048
  2. XENAZINE [Suspect]
     Active Substance: TETRABENAZINE
     Dosage: WEEK 3 AND ON: 12.5MG ONE TABLET ORALLY THREE TIMES A DAY
  3. XENAZINE [Suspect]
     Active Substance: TETRABENAZINE
     Indication: CHOREA
     Dosage: WEEK 1 / STARTING DOSE: 12.5MG ONE TABLET ORALLY ONCE A DAY
     Route: 048
  4. XENAZINE [Suspect]
     Active Substance: TETRABENAZINE
     Indication: BALLISMUS
     Dosage: ? TABLET ORALLY TWO TIMES A DAY
     Route: 048

REACTIONS (3)
  - Limb malformation [Unknown]
  - Intentional product use issue [Unknown]
  - Drug ineffective [Unknown]
